FAERS Safety Report 10179179 (Version 2)
Quarter: 2015Q2

REPORT INFORMATION
  Report Type: Report from Study
  Country: JP (occurrence: JP)
  Receive Date: 20140519
  Receipt Date: 20150427
  Transmission Date: 20150821
  Serious: Yes (Other)
  Sender: FDA-Public Use
  Company Number: JP-SA-2014SA063211

PATIENT
  Age: 38 Year
  Sex: Male
  Weight: 61 kg

DRUGS (18)
  1. THYMOGLOBULINE [Suspect]
     Active Substance: LAPINE T-LYMPHOCYTE IMMUNE GLOBULIN
     Indication: BONE MARROW CONDITIONING REGIMEN
     Route: 042
     Dates: start: 20110906, end: 20110907
  2. GRACEPTOR [Concomitant]
     Active Substance: TACROLIMUS
     Indication: PROPHYLAXIS AGAINST GRAFT VERSUS HOST DISEASE
     Dates: start: 20111025
  3. ETOPOSIDE. [Concomitant]
     Active Substance: ETOPOSIDE
     Dates: start: 20110825, end: 20110905
  4. DENOSINE [Concomitant]
     Active Substance: GANCICLOVIR
     Indication: ANTIVIRAL PROPHYLAXIS
     Dates: start: 20110905, end: 20110912
  5. PROGRAF [Concomitant]
     Active Substance: TACROLIMUS\TACROLIMUS ANHYDROUS
     Indication: PROPHYLAXIS AGAINST GRAFT VERSUS HOST DISEASE
     Dates: start: 20110910, end: 20111024
  6. NIFEDIPINE. [Concomitant]
     Active Substance: NIFEDIPINE
     Indication: HYPERTENSION
     Dates: start: 20110729
  7. FLUDARA [Concomitant]
     Active Substance: FLUDARABINE PHOSPHATE
     Dates: start: 20110906, end: 20110911
  8. METHOTREXATE [Concomitant]
     Active Substance: METHOTREXATE
     Indication: PROPHYLAXIS AGAINST GRAFT VERSUS HOST DISEASE
     Dates: start: 20110914, end: 20110919
  9. BAKTAR [Concomitant]
     Active Substance: SULFAMETHOXAZOLE\TRIMETHOPRIM
     Indication: PROPHYLAXIS
     Dates: start: 20111010
  10. CYLOCIDE [Concomitant]
     Active Substance: CYTARABINE
     Dates: start: 20110825, end: 20110905
  11. MAXIPIME [Concomitant]
     Active Substance: CEFEPIME HYDROCHLORIDE
     Indication: ANTIBIOTIC PROPHYLAXIS
     Dates: start: 20110907, end: 20110909
  12. BONALON [Concomitant]
     Active Substance: ALENDRONATE SODIUM
     Indication: OSTEOPOROSIS
     Dates: start: 20111020
  13. ACIROVEC [Concomitant]
     Active Substance: ACYCLOVIR
     Indication: ANTIVIRAL PROPHYLAXIS
     Dates: start: 20110914
  14. ETOPOSIDE. [Concomitant]
     Active Substance: ETOPOSIDE
     Dates: start: 20110909, end: 20110910
  15. UROKINASE [Concomitant]
     Active Substance: UROKINASE
     Indication: PROPHYLAXIS
     Dates: start: 20110906, end: 20110907
  16. ALKERAN [Concomitant]
     Active Substance: MELPHALAN
     Dates: start: 20110904, end: 20110911
  17. KYTRIL [Concomitant]
     Active Substance: GRANISETRON HYDROCHLORIDE
     Indication: PROPHYLAXIS OF NAUSEA AND VOMITING
     Dates: start: 20110825, end: 20110912
  18. FUNGUARD [Concomitant]
     Active Substance: MICAFUNGIN SODIUM
     Indication: ANTIFUNGAL PROPHYLAXIS
     Dates: start: 20110909, end: 20110927

REACTIONS (12)
  - Coagulopathy [Unknown]
  - Mucous membrane disorder [Unknown]
  - Hepatic function abnormal [Unknown]
  - Blood pressure decreased [Unknown]
  - Cystitis haemorrhagic [Recovered/Resolved]
  - Neutrophil count decreased [Unknown]
  - Cytokine release syndrome [Unknown]
  - Infection [Recovered/Resolved]
  - Capillary leak syndrome [Unknown]
  - Cellulitis [Unknown]
  - Post transplant lymphoproliferative disorder [Unknown]
  - Amylase increased [Unknown]

NARRATIVE: CASE EVENT DATE: 20110907
